FAERS Safety Report 16488646 (Version 1)
Quarter: 2019Q2

REPORT INFORMATION
  Report Type: Spontaneous
  Country: US (occurrence: US)
  Receive Date: 20190627
  Receipt Date: 20190627
  Transmission Date: 20190711
  Serious: No
  Sender: FDA-Public Use
  Company Number: US-AVADEL LEGACY PHARMACEUTICALS, LLC-2019AVA00081

PATIENT
  Age: 71 Year
  Sex: Male
  Weight: 68.03 kg

DRUGS (11)
  1. NOCTIVA [Suspect]
     Active Substance: DESMOPRESSIN ACETATE
     Indication: NOCTURIA
     Dosage: 0.83 ?G, 1X/DAY 20 MINUTES BEFORE BEDTIME
     Route: 045
     Dates: start: 201811, end: 201903
  2. LUMIGAN [Concomitant]
     Active Substance: BIMATOPROST
  3. LEVOTHYROXINE. [Concomitant]
     Active Substance: LEVOTHYROXINE
  4. LUTEIN [Concomitant]
     Active Substance: LUTEIN
  5. MONTELUKAST [Concomitant]
     Active Substance: MONTELUKAST SODIUM
  6. CYCLOBENZAPRINE. [Concomitant]
     Active Substance: CYCLOBENZAPRINE
     Dosage: UNK, AS NEEDED
  7. MELOXICAM. [Concomitant]
     Active Substance: MELOXICAM
  8. VITAMIN D [Concomitant]
     Active Substance: VITAMIN D NOS
  9. NOCTIVA [Suspect]
     Active Substance: DESMOPRESSIN ACETATE
     Dosage: 0.83 ?G, 1X/DAY 20 MINUTES BEFORE BEDTIME
     Route: 045
     Dates: start: 201903, end: 201903
  10. FINASTERIDE. [Concomitant]
     Active Substance: FINASTERIDE
  11. TIMOLOL. [Concomitant]
     Active Substance: TIMOLOL

REACTIONS (5)
  - Nasal congestion [Recovered/Resolved]
  - Product storage error [Recovered/Resolved]
  - Drug ineffective [Recovered/Resolved]
  - Product preparation issue [Recovered/Resolved]
  - Nasal discomfort [Recovered/Resolved]

NARRATIVE: CASE EVENT DATE: 201811
